FAERS Safety Report 7302383-1 (Version None)
Quarter: 2011Q1

REPORT INFORMATION
  Report Type: 
  Country: None (occurrence: None)
  Receive Date: 20110218
  Receipt Date: 20101108
  Transmission Date: 20110831
  Serious: No
  Sender: FDA-Public Use
  Company Number: US-ASTRAZENECA-2010SE53303

PATIENT
  Sex: Female

DRUGS (2)
  1. SULFA DRUG [Concomitant]
  2. ACCOLATE [Suspect]
     Indication: ASTHMA
     Route: 048
     Dates: start: 20100101

REACTIONS (3)
  - NECK PAIN [None]
  - IRRITABILITY [None]
  - DIZZINESS [None]
